FAERS Safety Report 23054845 (Version 4)
Quarter: 2023Q4

REPORT INFORMATION
  Report Type: Report from Study
  Country: US (occurrence: US)
  Receive Date: 20231011
  Receipt Date: 20231206
  Transmission Date: 20240110
  Serious: Yes (Other)
  Sender: FDA-Public Use
  Company Number: US-002147023-NVSC2023US212925

PATIENT
  Sex: Female

DRUGS (1)
  1. VOTRIENT [Suspect]
     Active Substance: PAZOPANIB HYDROCHLORIDE
     Indication: Product used for unknown indication
     Dosage: UNK
     Route: 065

REACTIONS (9)
  - Blindness [Unknown]
  - Stress [Unknown]
  - Colour blindness [Unknown]
  - Nodule [Unknown]
  - Malaise [Unknown]
  - Liver disorder [Unknown]
  - Illness [Unknown]
  - Decreased appetite [Unknown]
  - Alopecia [Unknown]
